FAERS Safety Report 7361813-X (Version None)
Quarter: 2011Q1

REPORT INFORMATION
  Report Type: 
  Country: None (occurrence: None)
  Receive Date: 20110318
  Receipt Date: 20110311
  Transmission Date: 20110831
  Serious: Yes (Hospitalization, Other)
  Sender: FDA-Public Use
  Company Number: US-ELI_LILLY_AND_COMPANY-US201008007271

PATIENT
  Sex: Female
  Weight: 77.098 kg

DRUGS (19)
  1. PRAVASTATIN [Concomitant]
     Dosage: 80 MG, EACH EVENING
  2. XANAX [Concomitant]
  3. NEXIUM [Concomitant]
  4. FORTEO [Suspect]
     Dosage: 20 UG, DAILY (1/D)
  5. CALCIUM [Concomitant]
     Dosage: 500 MG, 2/D
  6. ESOMEPRAZOLE MAGNESIUM [Concomitant]
     Dosage: 40 MG, DAILY (1/D)
  7. AMBIEN [Concomitant]
  8. NEUROTIN                           /00949202/ [Concomitant]
  9. FORTEO [Suspect]
     Indication: OSTEOPOROSIS
     Dosage: 20 UG, DAILY (1/D)
     Dates: start: 20100722, end: 20100919
  10. CYPROHEPTADINE HCL [Concomitant]
     Dosage: 4 MG, 3/D
  11. PROZAC [Concomitant]
  12. LIPITOR [Concomitant]
  13. AMITRIPTYLINE HCL [Concomitant]
  14. FORTEO [Suspect]
     Dosage: 20 UG, DAILY (1/D)
  15. TORADOL [Concomitant]
     Indication: MIGRAINE
  16. GEMFIBROZIL [Concomitant]
     Dosage: 600 MG, 2/D
  17. ATENOLOL [Concomitant]
  18. ERGOCALCIFEROL [Concomitant]
     Dosage: 50000 U, OTHER
  19. ANTIBIOTICS [Concomitant]

REACTIONS (29)
  - CONVULSION [None]
  - GASTROENTERITIS [None]
  - VOMITING [None]
  - IMPAIRED HEALING [None]
  - SCIATICA [None]
  - ACNE [None]
  - HEADACHE [None]
  - PHARYNGEAL OEDEMA [None]
  - HEPATITIS [None]
  - HEPATIC ENZYME INCREASED [None]
  - ASTHENIA [None]
  - BACK PAIN [None]
  - ARTHRALGIA [None]
  - DYSPNOEA [None]
  - DEHYDRATION [None]
  - BLINDNESS [None]
  - SWELLING FACE [None]
  - HEPATIC STEATOSIS [None]
  - FALL [None]
  - PNEUMONIA [None]
  - DIARRHOEA [None]
  - VAGINAL CYST [None]
  - CONTUSION [None]
  - HAEMORRHAGE [None]
  - SWELLING [None]
  - DEPRESSION [None]
  - CONSTIPATION [None]
  - MIGRAINE [None]
  - DRUG HYPERSENSITIVITY [None]
